FAERS Safety Report 12394800 (Version 1)
Quarter: 2016Q2

REPORT INFORMATION
  Report Type: Spontaneous
  Country: IT (occurrence: IT)
  Receive Date: 20160523
  Receipt Date: 20160523
  Transmission Date: 20160815
  Serious: Yes (Hospitalization)
  Sender: FDA-Public Use
  Company Number: IT-ABBVIE-16P-083-1629005-00

PATIENT
  Age: 74 Year
  Sex: Male
  Weight: 58 kg

DRUGS (2)
  1. VIEKIRAX [Suspect]
     Active Substance: OMBITASVIR\PARITAPREVIR\RITONAVIR
     Indication: HEPATITIS C
     Dosage: DAILY, 25 MG
     Route: 048
     Dates: start: 20160501, end: 20160503
  2. EXVIERA [Suspect]
     Active Substance: DASABUVIR
     Indication: HEPATITIS C
     Dosage: DAILY
     Route: 048
     Dates: start: 20160501, end: 20160503

REACTIONS (1)
  - Pneumonitis [Not Recovered/Not Resolved]

NARRATIVE: CASE EVENT DATE: 20160503
